FAERS Safety Report 8166312-3 (Version None)
Quarter: 2012Q1

REPORT INFORMATION
  Report Type: 
  Country: None (occurrence: None)
  Receive Date: 20120227
  Receipt Date: 20110711
  Transmission Date: 20120608
  Serious: No
  Sender: FDA-Public Use
  Company Number: US-MYLANLABS-2011S1011678

PATIENT
  Age: 37 Year
  Sex: Female

DRUGS (3)
  1. AMNESTEEM [Suspect]
     Indication: ACNE CYSTIC
     Route: 048
     Dates: start: 20110302, end: 20110504
  2. LEVOTHYROXINE SODIUM [Concomitant]
  3. CLARAVIS [Suspect]
     Indication: ACNE CYSTIC

REACTIONS (1)
  - BLOOD TRIGLYCERIDES INCREASED [None]
